FAERS Safety Report 6250251-9 (Version None)
Quarter: 2009Q2

REPORT INFORMATION
  Report Type: 
  Country: None (occurrence: None)
  Receive Date: 20090626
  Receipt Date: 20090626
  Transmission Date: 20091009
  Serious: Yes (Hospitalization)
  Sender: FDA-Public Use
  Company Number: None

PATIENT
  Sex: Female
  Weight: 68.9 kg

DRUGS (2)
  1. CARBOPLATIN [Suspect]
     Dosage: 1884 MG
     Dates: end: 20090604
  2. TAXOL [Suspect]
     Dosage: 1253 MG
     Dates: end: 20090604

REACTIONS (5)
  - ASPARTATE AMINOTRANSFERASE INCREASED [None]
  - HAEMOGLOBIN DECREASED [None]
  - LEUKOCYTOCLASTIC VASCULITIS [None]
  - PLATELET COUNT INCREASED [None]
  - RASH [None]
